FAERS Safety Report 20615020 (Version 3)
Quarter: 2022Q2

REPORT INFORMATION
  Report Type: Spontaneous
  Country: US (occurrence: US)
  Receive Date: 20220321
  Receipt Date: 20220519
  Transmission Date: 20220721
  Serious: No
  Sender: FDA-Public Use
  Company Number: US-BIOGEN-2020BI00895585

PATIENT
  Age: 43 Year
  Sex: Female

DRUGS (3)
  1. TECFIDERA [Suspect]
     Active Substance: DIMETHYL FUMARATE
     Indication: Multiple sclerosis
     Route: 065
     Dates: start: 20170913
  2. TECFIDERA [Suspect]
     Active Substance: DIMETHYL FUMARATE
     Route: 065
     Dates: start: 202002
  3. TECFIDERA [Suspect]
     Active Substance: DIMETHYL FUMARATE
     Route: 048
     Dates: start: 2019

REACTIONS (8)
  - Memory impairment [Unknown]
  - Fall [Recovered/Resolved]
  - Tissue injury [Unknown]
  - Muscle injury [Unknown]
  - Joint injury [Unknown]
  - Arthritis [Unknown]
  - Hemiparesis [Unknown]
  - Pain [Unknown]

NARRATIVE: CASE EVENT DATE: 20220316
